FAERS Safety Report 16786463 (Version 1)
Quarter: 2019Q3

REPORT INFORMATION
  Report Type: Spontaneous
  Country: US (occurrence: US)
  Receive Date: 20190907
  Receipt Date: 20190907
  Transmission Date: 20191005
  Serious: Yes (Life-Threatening, Hospitalization)
  Sender: FDA-Public Use
  Company Number: None

PATIENT
  Age: 21 Year
  Sex: Female
  Weight: 50 kg

DRUGS (2)
  1. THC OIL [Suspect]
     Active Substance: HERBALS
  2. VAPE DEVICE (THC OIL) [Suspect]
     Active Substance: DEVICE\HERBALS
     Indication: ACUTE RESPIRATORY DISTRESS SYNDROME
     Dates: start: 20190628, end: 20190702

REACTIONS (2)
  - Respiratory failure [None]
  - Acute respiratory distress syndrome [None]

NARRATIVE: CASE EVENT DATE: 20190626
